FAERS Safety Report 8560238-9 (Version None)
Quarter: 2012Q3

REPORT INFORMATION
  Report Type: 
  Country: None (occurrence: None)
  Receive Date: 20120802
  Receipt Date: 20120724
  Transmission Date: 20120928
  Serious: Yes (Other)
  Sender: FDA-Public Use
  Company Number: US-BAYER-2012-028629

PATIENT
  Age: 20 Year
  Sex: Female
  Weight: 61.224 kg

DRUGS (12)
  1. YAZ [Suspect]
     Indication: PREMENSTRUAL SYNDROME
  2. ANTI-ACNE PREPARATIONS [Concomitant]
     Route: 061
  3. ANTIMIGRAINE PREPARATIONS [Concomitant]
     Dosage: UNK UNK, PRN
  4. BEYAZ [Suspect]
     Indication: CONTRACEPTION
  5. YAZ [Suspect]
     Indication: DYSMENORRHOEA
  6. PROTONIX [Concomitant]
     Route: 048
  7. PEPCID [Concomitant]
     Dosage: UNK UNK, PRN
     Route: 048
  8. WOMEN'S VITAMINS [Concomitant]
     Dosage: DAILY
     Route: 048
  9. PRILOSEC [Concomitant]
     Indication: GASTRITIS
     Route: 048
  10. YAZ [Suspect]
     Indication: ACNE
     Dosage: UNK
     Dates: start: 20071101
  11. NSAID'S [Concomitant]
     Dosage: UNK UNK, PRN
     Route: 048
  12. ASCORBIC ACID [Concomitant]
     Dosage: UNK UNK, PRN

REACTIONS (8)
  - MENTAL DISORDER [None]
  - GENERAL PHYSICAL HEALTH DETERIORATION [None]
  - ANXIETY [None]
  - INJURY [None]
  - CHOLECYSTITIS [None]
  - CHOLECYSTITIS CHRONIC [None]
  - PAIN [None]
  - EMOTIONAL DISTRESS [None]
